FAERS Safety Report 13640809 (Version 4)
Quarter: 2017Q3

REPORT INFORMATION
  Report Type: Spontaneous
  Country: IT (occurrence: IT)
  Receive Date: 20170612
  Receipt Date: 20170906
  Transmission Date: 20171127
  Serious: Yes (Death, Life-Threatening, Hospitalization, Other)
  Sender: FDA-Public Use
  Company Number: IT-BRISTOL-MYERS SQUIBB COMPANY-BMS-2017-050332

PATIENT
  Age: 49 Year
  Sex: Female
  Weight: 61 kg

DRUGS (2)
  1. DAKLINZA [Suspect]
     Active Substance: DACLATASVIR
     Indication: HEPATITIS C
     Dosage: 1 IU, DAILY
     Route: 048
     Dates: start: 20170403, end: 20170529
  2. SOVALDI [Suspect]
     Active Substance: SOFOSBUVIR
     Indication: HEPATITIS C
     Dosage: 1 IU, DAILY
     Route: 048
     Dates: start: 20170403, end: 20170529

REACTIONS (9)
  - Enterococcal sepsis [Fatal]
  - Transfusion [Unknown]
  - Peritonitis bacterial [Fatal]
  - Pneumonia aspiration [Recovering/Resolving]
  - Haematemesis [Recovering/Resolving]
  - Melaena [Recovering/Resolving]
  - Gastrointestinal haemorrhage [Fatal]
  - Klebsiella sepsis [Fatal]
  - Shock haemorrhagic [Recovering/Resolving]

NARRATIVE: CASE EVENT DATE: 20170529
